FAERS Safety Report 22096979 (Version 1)
Quarter: 2023Q1

REPORT INFORMATION
  Report Type: Spontaneous
  Country: US (occurrence: US)
  Receive Date: 20230315
  Receipt Date: 20230315
  Transmission Date: 20230418
  Serious: Yes (Other)
  Sender: FDA-Public Use
  Company Number: US-PFIZER INC-2021855532

PATIENT
  Age: 63 Year

DRUGS (1)
  1. LIOTHYRONINE SODIUM [Suspect]
     Active Substance: LIOTHYRONINE SODIUM
     Indication: Tri-iodothyronine decreased
     Dosage: UNK

REACTIONS (3)
  - Mental impairment [Unknown]
  - Feeling abnormal [Unknown]
  - Thyroid disorder [Unknown]
